FAERS Safety Report 21061687 (Version 1)
Quarter: 2022Q3

REPORT INFORMATION
  Report Type: Spontaneous
  Country: US (occurrence: US)
  Receive Date: 20220709
  Receipt Date: 20220709
  Transmission Date: 20221027
  Serious: No
  Sender: FDA-Public Use
  Company Number: US-TEVA-2022-US-2048255

PATIENT
  Age: 35 Year
  Sex: Male
  Weight: 81.65 kg

DRUGS (1)
  1. LORAZEPAM [Suspect]
     Active Substance: LORAZEPAM
     Indication: Anxiety
     Route: 065

REACTIONS (7)
  - Panic attack [Unknown]
  - Drug ineffective [Unknown]
  - Tachycardia [Unknown]
  - White blood cell count increased [Recovered/Resolved]
  - Neutrophil count increased [Recovered/Resolved]
  - Fibrin D dimer decreased [Unknown]
  - Troponin decreased [Unknown]
